APPROVED DRUG PRODUCT: DICOPAC KIT
Active Ingredient: CYANOCOBALAMIN; CYANOCOBALAMIN CO-57; CYANOCOBALAMIN CO-58
Strength: N/A;N/A;N/A
Dosage Form/Route: N/A;N/A
Application: N017406 | Product #001
Applicant: GE HEALTHCARE
Approved: Approved Prior to Jan 1, 1982 | RLD: No | RS: No | Type: DISCN